FAERS Safety Report 6719549-1 (Version None)
Quarter: 2010Q2

REPORT INFORMATION
  Report Type: 
  Country: None (occurrence: None)
  Receive Date: 20100510
  Receipt Date: 20100510
  Transmission Date: 20101027
  Serious: Yes (Hospitalization, Other)
  Sender: FDA-Public Use
  Company Number: None

PATIENT
  Age: 46 Year
  Sex: Male
  Weight: 117.9352 kg

DRUGS (1)
  1. LYRICA [Suspect]
     Indication: ANGINA PECTORIS
     Dosage: 100MG 3 A DAY PO
     Route: 048
     Dates: start: 20090101, end: 20100509

REACTIONS (5)
  - COORDINATION ABNORMAL [None]
  - MEMORY IMPAIRMENT [None]
  - OEDEMA PERIPHERAL [None]
  - TRANSIENT GLOBAL AMNESIA [None]
  - WEIGHT INCREASED [None]
